FAERS Safety Report 9003880 (Version 1)
Quarter: 2013Q1

REPORT INFORMATION
  Report Type: Report from Study
  Country: US (occurrence: US)
  Receive Date: 20130108
  Receipt Date: 20130108
  Transmission Date: 20140127
  Serious: Yes (Death, Hospitalization, Other)
  Sender: FDA-Public Use
  Company Number: US-TEVA-373341USA

PATIENT
  Sex: Male

DRUGS (18)
  1. CLOZAPINE [Suspect]
     Indication: SCHIZOPHRENIA
     Route: 048
  2. SENNA [Concomitant]
  3. ASPIRIN [Concomitant]
  4. SPIRONOLACTONE [Concomitant]
  5. LISINOPRIL [Concomitant]
  6. LISINOPRIL [Concomitant]
  7. LOPRESSOR [Concomitant]
  8. PANTOPRAZOLE [Concomitant]
  9. LIPITOR [Concomitant]
  10. TYLENOL [Concomitant]
     Dosage: PRN
  11. COUMADIN [Concomitant]
  12. ISOSORBIDE MONONITRATE [Concomitant]
  13. VENTOLIN [Concomitant]
  14. LASIX [Concomitant]
  15. COLACE [Concomitant]
  16. BISACODYL [Concomitant]
  17. ROBITUSSIN [Concomitant]
  18. DUONEB [Concomitant]

REACTIONS (4)
  - Cardiac failure congestive [Fatal]
  - Head injury [Fatal]
  - Fall [Fatal]
  - Haemorrhage intracranial [Fatal]
